FAERS Safety Report 8811424 (Version 2)
Quarter: 2012Q4

REPORT INFORMATION
  Report Type: 
  Country: ZA (occurrence: ZA)
  Receive Date: 20120927
  Receipt Date: 20120928
  Transmission Date: 20130627
  Serious: Yes (Other)
  Sender: FDA-Public Use
  Company Number: ZA-PFIZER INC-2012238490

PATIENT
  Age: 42 Year
  Sex: Male
  Weight: 200 kg

DRUGS (8)
  1. CHAMPIX [Suspect]
     Indication: SMOKING CESSATION THERAPY
     Dosage: 1 mg, 2x/day
     Route: 048
     Dates: start: 20120908, end: 20120925
  2. LASIX [Concomitant]
     Indication: HYPERTENSION
     Dosage: 40 mg, 2x/day
     Route: 048
     Dates: start: 2012
  3. PREXUM [Concomitant]
     Indication: HYPERTENSION
     Dosage: 4 mg, 1x/day (mane , in morning)
     Route: 048
     Dates: start: 2002
  4. CARVEDILOL [Concomitant]
     Indication: HYPERTENSION
     Dosage: half tablet 2xdaily
     Route: 048
     Dates: start: 2012
  5. SPIRACTIN [Concomitant]
     Indication: HYPERTENSION
     Dosage: 25 mg, 2x/day
     Dates: start: 2012
  6. GLUCOPHAGE [Concomitant]
     Indication: TYPE 1 DIABETES MELLITUS
     Dosage: 850 mg, 2x/day
  7. LANTUS [Concomitant]
     Indication: TYPE 1 DIABETES MELLITUS
     Dosage: UNK
  8. APIDRA [Concomitant]
     Indication: TYPE 1 DIABETES MELLITUS
     Dosage: UNK

REACTIONS (6)
  - Hallucination [Unknown]
  - Dermatitis allergic [Recovered/Resolved]
  - Abnormal dreams [Recovered/Resolved]
  - Panic reaction [Recovered/Resolved]
  - Hyperhidrosis [Unknown]
  - Erythema [Recovered/Resolved]
